FAERS Safety Report 20729429 (Version 3)
Quarter: 2025Q2

REPORT INFORMATION
  Report Type: Spontaneous
  Country: NL (occurrence: NL)
  Receive Date: 20220420
  Receipt Date: 20250619
  Transmission Date: 20250717
  Serious: Yes (Other)
  Sender: AUROBINDO
  Company Number: NL-ELI_LILLY_AND_COMPANY-NL202203012409

PATIENT
  Age: 30 Year
  Sex: Male

DRUGS (3)
  1. SILDENAFIL [Suspect]
     Active Substance: SILDENAFIL
     Indication: Pulmonary vascular resistance abnormality
     Dosage: 5 MILLIGRAM, TWO TIMES A DAY (TITRATION SCHEME TO 20 MG T.I.)
     Route: 065
  2. TADALAFIL [Suspect]
     Active Substance: TADALAFIL
     Indication: Pulmonary arterial hypertension
     Dosage: 5 MILLIGRAM, ONCE A DAY (5 MG, DAILY)
     Route: 065
  3. TADALAFIL [Suspect]
     Active Substance: TADALAFIL
     Dosage: 40 MILLIGRAM, ONCE A DAY (40 MG, DAILY)
     Route: 065

REACTIONS (3)
  - Dilated cardiomyopathy [Recovering/Resolving]
  - Right ventricular failure [Recovering/Resolving]
  - Ventilation perfusion mismatch [Recovering/Resolving]
